FAERS Safety Report 24221440 (Version 4)
Quarter: 2024Q4

REPORT INFORMATION
  Report Type: Report from Study
  Country: EG (occurrence: EG)
  Receive Date: 20240819
  Receipt Date: 20241031
  Transmission Date: 20250114
  Serious: Yes (Other)
  Sender: BOEHRINGER INGELHEIM
  Company Number: EG-BoehringerIngelheim-2024-BI-001692

PATIENT
  Age: 55 Year
  Sex: Female
  Weight: 71 kg

DRUGS (15)
  1. OFEV [Suspect]
     Active Substance: NINTEDANIB
     Indication: Pulmonary fibrosis
     Route: 048
     Dates: start: 20231204
  2. TERIPARATIDE [Suspect]
     Active Substance: TERIPARATIDE
     Indication: Abdominal pain upper
     Dates: start: 202406
  3. TERIPARATIDE [Suspect]
     Active Substance: TERIPARATIDE
     Indication: Pulmonary fibrosis
  4. OMEPRAZOLE [Suspect]
     Active Substance: OMEPRAZOLE
     Indication: Product used for unknown indication
     Dates: start: 202404
  5. MOTILIUM [Suspect]
     Active Substance: DOMPERIDONE
     Indication: Product used for unknown indication
     Dates: start: 202404
  6. Breztri nasal spray [Concomitant]
     Indication: Drug therapy
     Dates: start: 202405
  7. Seroflo 250 mg [Concomitant]
     Indication: Pulmonary fibrosis
     Route: 055
     Dates: start: 20231204
  8. tussistop syrup [Concomitant]
     Indication: Antitussive therapy
     Route: 048
     Dates: start: 20231204
  9. tussistop syrup [Concomitant]
     Indication: Cough
  10. Cortopect 300 mg [Concomitant]
     Indication: Drug therapy
     Route: 048
     Dates: start: 20231204
  11. Asmakast 10 mg [Concomitant]
     Indication: Pulmonary fibrosis
     Route: 048
     Dates: start: 20231204
  12. Delarex 5 mg [Concomitant]
     Indication: Pulmonary fibrosis
     Route: 048
     Dates: start: 20231204
  13. Limitless Ossofortin 5000 I.U. [Concomitant]
     Indication: Vitamin D deficiency
     Route: 048
  14. ITOPRIDE [Concomitant]
     Active Substance: ITOPRIDE
     Indication: Gastrooesophageal reflux disease
     Route: 048
     Dates: start: 20231229
  15. Nasoflutin Nasal Spray [Concomitant]
     Indication: Pulmonary fibrosis
     Route: 045
     Dates: start: 20231204, end: 202405

REACTIONS (20)
  - Weight decreased [Not Recovered/Not Resolved]
  - Diarrhoea [Not Recovered/Not Resolved]
  - Constipation [Not Recovered/Not Resolved]
  - Abdominal pain upper [Recovered/Resolved]
  - Vomiting [Recovered/Resolved]
  - Nausea [Recovered/Resolved]
  - Diarrhoea [Recovering/Resolving]
  - Headache [Not Recovered/Not Resolved]
  - Chest discomfort [Not Recovered/Not Resolved]
  - Pain [Not Recovered/Not Resolved]
  - Cough [Not Recovered/Not Resolved]
  - Sleep disorder [Not Recovered/Not Resolved]
  - Cough [Not Recovered/Not Resolved]
  - Dyspnoea [Not Recovered/Not Resolved]
  - Bronchitis [Recovered/Resolved]
  - Vomiting [Not Recovered/Not Resolved]
  - Product dose omission issue [Recovered/Resolved]
  - Malaise [Recovering/Resolving]
  - Lethargy [Recovering/Resolving]
  - Cough [Recovering/Resolving]

NARRATIVE: CASE EVENT DATE: 20230101
